FAERS Safety Report 7969803-0 (Version None)
Quarter: 2011Q4

REPORT INFORMATION
  Report Type: 
  Country: None (occurrence: None)
  Receive Date: 20111212
  Receipt Date: 20111130
  Transmission Date: 20120403
  Serious: Yes (Hospitalization)
  Sender: FDA-Public Use
  Company Number: US-BAYER-200934825NA

PATIENT
  Age: 25 Year
  Sex: Female
  Weight: 84 kg

DRUGS (3)
  1. YAZ [Suspect]
     Dosage: 1 DF (DAILY DOSE), QD, ORAL
     Route: 048
     Dates: start: 20090601, end: 20090801
  2. METHYLPREDNISOLONE [Concomitant]
  3. NAPROXEN [Concomitant]
     Indication: LIGAMENT SPRAIN
     Dates: start: 20090721

REACTIONS (6)
  - CHEST DISCOMFORT [None]
  - DEEP VEIN THROMBOSIS [None]
  - WHEEZING [None]
  - PAIN [None]
  - PULMONARY EMBOLISM [None]
  - PAIN IN EXTREMITY [None]
